FAERS Safety Report 6657731-2 (Version None)
Quarter: 2010Q1

REPORT INFORMATION
  Report Type: 
  Country: None (occurrence: None)
  Receive Date: 20100325
  Receipt Date: 20100317
  Transmission Date: 20100710
  Serious: Yes (Death, Life-Threatening)
  Sender: FDA-Public Use
  Company Number: 2010EU000884

PATIENT
  Age: 52 Year
  Sex: Male
  Weight: 90 kg

DRUGS (16)
  1. MYCAMINE [Suspect]
     Indication: ANTIFUNGAL PROPHYLAXIS
     Dosage: 100 MG, UID/QD, IV NOS
     Route: 042
     Dates: start: 20100218, end: 20100302
  2. MYCAMINE [Suspect]
     Indication: LIVER TRANSPLANT
     Dosage: 100 MG, UID/QD, IV NOS
     Route: 042
     Dates: start: 20100218, end: 20100302
  3. NEORAL [Concomitant]
  4. SIMULECT [Concomitant]
  5. SIMULECT [Concomitant]
  6. SOLU-MEDROL [Concomitant]
  7. VALGANCICLOVIR HCL [Concomitant]
  8. CLAVENTIN (TICARCILLIN DISODIUM) [Concomitant]
  9. NOREPINEPHRINE BITARTRATE [Concomitant]
  10. MINIRIN [Concomitant]
  11. LEVOTHYROXINE SODIUM [Concomitant]
  12. ACTRAPID (INSULIN HUMAN) [Concomitant]
  13. ACUPAN [Concomitant]
  14. KETAMINE HCL [Concomitant]
  15. ULTIVA [Concomitant]
  16. HEPARIN [Concomitant]

REACTIONS (9)
  - CANDIDA SEPSIS [None]
  - ENTEROCOCCAL INFECTION [None]
  - FUNGAL SEPSIS [None]
  - HAEMODIALYSIS [None]
  - LUNG DISORDER [None]
  - MULTI-ORGAN FAILURE [None]
  - RENAL FAILURE [None]
  - RESPIRATORY TRACT INFECTION [None]
  - STENOTROPHOMONAS INFECTION [None]
